FAERS Safety Report 5877586-3 (Version None)
Quarter: 2008Q3

REPORT INFORMATION
  Report Type: 
  Country: None (occurrence: None)
  Receive Date: 20080911
  Receipt Date: 20080904
  Transmission Date: 20090109
  Serious: Yes (Other)
  Sender: FDA-Public Use
  Company Number: PHHY2008JP20536

PATIENT
  Age: 60 Year
  Sex: Male

DRUGS (2)
  1. DIOVAN [Suspect]
     Dosage: 80 MG, QD
     Route: 048
  2. NORVASC [Concomitant]
     Dosage: 2.5 MG

REACTIONS (2)
  - HYPOAESTHESIA [None]
  - SENSORY LOSS [None]
